FAERS Safety Report 9844042 (Version 1)
Quarter: 2014Q1

REPORT INFORMATION
  Report Type: Spontaneous
  Country: US (occurrence: US)
  Receive Date: 20140126
  Receipt Date: 20140126
  Transmission Date: 20141002
  Serious: No
  Sender: FDA-Public Use
  Company Number: US-009507513-1401USA008901

PATIENT
  Sex: Female

DRUGS (1)
  1. DULERA [Suspect]
     Dosage: TWO INHALATIONS TWICE DAILY, DULERA INHR_EA 200MCG/5MCG 1 STANDARD DOSE OF 13
     Dates: start: 2011

REACTIONS (3)
  - Incorrect dose administered [Unknown]
  - Product quality issue [Unknown]
  - No adverse event [Unknown]
